FAERS Safety Report 25023142 (Version 1)
Quarter: 2025Q1

REPORT INFORMATION
  Report Type: Spontaneous
  Country: US (occurrence: None)
  Receive Date: 20250228
  Receipt Date: 20250228
  Transmission Date: 20250409
  Serious: Yes (Death)
  Sender: FDA-CTU
  Company Number: None

PATIENT
  Age: 57 Year
  Sex: Female
  Weight: 88.1 kg

DRUGS (2)
  1. CYCLOPHOSPHAMIDE [Suspect]
     Active Substance: CYCLOPHOSPHAMIDE
     Dates: end: 20250205
  2. DOXORUBICIN HYDROCHLORIDE [Suspect]
     Active Substance: DOXORUBICIN HYDROCHLORIDE
     Dates: end: 20250205

REACTIONS (8)
  - Urinary tract infection [None]
  - Bacterial infection [None]
  - Lactic acidosis [None]
  - Septic shock [None]
  - Disseminated intravascular coagulation [None]
  - Transfusion [None]
  - Cardio-respiratory arrest [None]
  - Haemofiltration [None]

NARRATIVE: CASE EVENT DATE: 20250218
